FAERS Safety Report 12500975 (Version 3)
Quarter: 2016Q3

REPORT INFORMATION
  Report Type: Spontaneous
  Country: US (occurrence: US)
  Receive Date: 20160627
  Receipt Date: 20160809
  Transmission Date: 20161109
  Serious: Yes (Other)
  Sender: FDA-Public Use
  Company Number: US-SA-2016SA114989

PATIENT
  Age: 68 Year
  Sex: Female
  Weight: 110.23 kg

DRUGS (12)
  1. ALIROCUMAB PREFILLED PEN [Concomitant]
     Active Substance: ALIROCUMAB
     Dates: start: 20160609
  2. PREDNISONE. [Suspect]
     Active Substance: PREDNISONE
     Route: 065
     Dates: start: 20160608
  3. CLARINEX [Concomitant]
     Active Substance: DESLORATADINE
     Indication: SINUS DISORDER
  4. NASACORT [Concomitant]
     Active Substance: TRIAMCINOLONE ACETONIDE
     Indication: SINUS DISORDER
     Dosage: 2 PUFFS EACH NOSTRIL
  5. VITAMIN B12 [Concomitant]
     Active Substance: CYANOCOBALAMIN
  6. ZETIA [Concomitant]
     Active Substance: EZETIMIBE
     Indication: BLOOD CHOLESTEROL
  7. METOPROLOL. [Concomitant]
     Active Substance: METOPROLOL
     Indication: BLOOD PRESSURE MEASUREMENT
  8. PATANASE [Concomitant]
     Active Substance: OLOPATADINE HYDROCHLORIDE
     Indication: SINUS DISORDER
  9. MONTELUKAST SODIUM. [Concomitant]
     Active Substance: MONTELUKAST SODIUM
  10. PREVACID [Concomitant]
     Active Substance: LANSOPRAZOLE
     Indication: HYPERCHLORHYDRIA
  11. PROLIA [Concomitant]
     Active Substance: DENOSUMAB
     Indication: BONE DENSITY DECREASED
  12. PRALUENT [Suspect]
     Active Substance: ALIROCUMAB
     Indication: BLOOD CHOLESTEROL INCREASED
     Route: 065
     Dates: start: 20160609

REACTIONS (16)
  - Diarrhoea [Recovered/Resolved]
  - Sinus congestion [Recovered/Resolved]
  - Mobility decreased [Recovering/Resolving]
  - Headache [Recovered/Resolved]
  - Constipation [Not Recovered/Not Resolved]
  - Chills [Recovered/Resolved]
  - Asthenia [Recovered/Resolved]
  - Impaired driving ability [Recovered/Resolved]
  - Dizziness [Recovered/Resolved]
  - Faeces discoloured [Recovering/Resolving]
  - Tremor [Recovered/Resolved]
  - Tinnitus [Not Recovered/Not Resolved]
  - Malaise [Recovered/Resolved]
  - Fatigue [Recovered/Resolved]
  - Gait disturbance [Recovering/Resolving]
  - Pain [Recovered/Resolved]

NARRATIVE: CASE EVENT DATE: 2016
